FAERS Safety Report 6665402-1 (Version None)
Quarter: 2010Q2

REPORT INFORMATION
  Report Type: 
  Country: None (occurrence: None)
  Receive Date: 20100402
  Receipt Date: 20100324
  Transmission Date: 20101027
  Serious: Yes (Other)
  Sender: FDA-Public Use
  Company Number: JP-PFIZER INC-2010040326

PATIENT
  Age: 64 Year
  Sex: Female

DRUGS (2)
  1. SILDENAFIL CITRATE [Suspect]
     Indication: PULMONARY ARTERIAL HYPERTENSION
     Dosage: UNK
     Route: 048
     Dates: start: 20041215, end: 20050701
  2. SILDENAFIL CITRATE [Suspect]
     Dosage: UNK
     Dates: start: 20060501, end: 20060701

REACTIONS (1)
  - HYPOTENSION [None]
